FAERS Safety Report 17753917 (Version 2)
Quarter: 2020Q3

REPORT INFORMATION
  Report Type: Spontaneous
  Country: FR (occurrence: FR)
  Receive Date: 20200507
  Receipt Date: 20200902
  Transmission Date: 20201102
  Serious: Yes (Other)
  Sender: FDA-Public Use
  Company Number: FR-AUROBINDO-AUR-APL-2020-021838

PATIENT
  Age: 86 Year
  Sex: Male
  Weight: 75 kg

DRUGS (4)
  1. PRIMPERAN [Suspect]
     Active Substance: METOCLOPRAMIDE HYDROCHLORIDE
     Indication: NAUSEA
     Dosage: 1 DOSAGE FORM 1 TOTAL
     Route: 042
     Dates: start: 20200418, end: 20200418
  2. LOPERAMIDE ARROW CAPSULE, HARD 2MG [Suspect]
     Active Substance: LOPERAMIDE
     Indication: DIARRHOEA
     Dosage: 16 MILLIGRAM, ONCE A DAY
     Route: 048
     Dates: start: 202003
  3. OXYCODONE [Suspect]
     Active Substance: OXYCODONE
     Indication: ANALGESIC INTERVENTION SUPPORTIVE THERAPY
     Dosage: 15 MILLIGRAM, ONCE A DAY
     Route: 048
     Dates: start: 20200415
  4. ATARAX [Suspect]
     Active Substance: HYDROXYZINE HYDROCHLORIDE
     Indication: SLEEP DISORDER
     Dosage: 12.5 MILLIGRAM 1 TOTAL
     Route: 048
     Dates: start: 20200418, end: 20200418

REACTIONS (1)
  - Urinary retention [Recovered/Resolved]

NARRATIVE: CASE EVENT DATE: 20200419
